FAERS Safety Report 23587862 (Version 1)
Quarter: 2024Q1

REPORT INFORMATION
  Report Type: Spontaneous
  Country: IT (occurrence: IT)
  Receive Date: 20240301
  Receipt Date: 20240301
  Transmission Date: 20240410
  Serious: Yes (Other)
  Sender: FDA-Public Use
  Company Number: IT-009507513-2402ITA009224

PATIENT
  Age: 66 Year
  Sex: Female

DRUGS (3)
  1. KEYTRUDA [Suspect]
     Active Substance: PEMBROLIZUMAB
     Dosage: 200 MILLIGRAM
     Route: 042
     Dates: start: 20240105, end: 20240213
  2. PACLITAXEL [Suspect]
     Active Substance: PACLITAXEL
     Dosage: 186 MILLIGRAM. NAB-PACLITAXEL SC 06/2026
     Route: 042
     Dates: start: 20240105, end: 20240213
  3. CARBOPLATIN [Suspect]
     Active Substance: CARBOPLATIN
     Dosage: 200 MILLIGRAM. SC 08/2025
     Route: 042
     Dates: start: 20240105, end: 20240213

REACTIONS (5)
  - Neutropenia [Recovering/Resolving]
  - Skin toxicity [Recovered/Resolved]
  - Epistaxis [Recovered/Resolved]
  - Asthenia [Recovered/Resolved]
  - Diarrhoea [Recovered/Resolved]

NARRATIVE: CASE EVENT DATE: 20240105
